FAERS Safety Report 18568414 (Version 2)
Quarter: 2020Q4

REPORT INFORMATION
  Report Type: Report from Study
  Country: US (occurrence: US)
  Receive Date: 20201202
  Receipt Date: 20201209
  Transmission Date: 20210114
  Serious: Yes (Other)
  Sender: FDA-Public Use
  Company Number: US-ROCHE-2716865

PATIENT
  Age: 27 Year
  Sex: Female
  Weight: 60.6 kg

DRUGS (4)
  1. BLINDED RISDIPLAM [Suspect]
     Active Substance: RISDIPLAM
     Indication: SPINAL MUSCULAR ATROPHY
     Route: 048
     Dates: start: 20180510
  2. PERMETHRIN. [Concomitant]
     Active Substance: PERMETHRIN
  3. RISDIPLAM. [Suspect]
     Active Substance: RISDIPLAM
     Indication: SPINAL MUSCULAR ATROPHY
     Dosage: DATE OF MOST RECENT DOSE OF OPEN LABEL RISDIPLAM PRIOR TO ADVERSE EVENT ONSET: 24/AUG/2020.
     Route: 048
     Dates: end: 20201020
  4. NORETHINDRONE ACETATE AND ETHINYL ESTRADIOL [Concomitant]
     Active Substance: ETHINYL ESTRADIOL\NORETHINDRONE ACETATE
     Dates: start: 200606

REACTIONS (1)
  - Transaminases increased [Recovering/Resolving]

NARRATIVE: CASE EVENT DATE: 20200825
